FAERS Safety Report 14289646 (Version 2)
Quarter: 2017Q4

REPORT INFORMATION
  Report Type: Spontaneous
  Country: US (occurrence: US)
  Receive Date: 20171215
  Receipt Date: 20171219
  Transmission Date: 20180321
  Serious: No
  Sender: FDA-Public Use
  Company Number: US-TEVA-2017-US-830939

PATIENT
  Age: 53 Year
  Sex: Female

DRUGS (9)
  1. HYDROCHLOROTHIAZIDE. [Concomitant]
     Active Substance: HYDROCHLOROTHIAZIDE
     Route: 065
  2. VASOTEC [Concomitant]
     Active Substance: ENALAPRIL MALEATE
     Route: 065
  3. ZOCOR [Concomitant]
     Active Substance: SIMVASTATIN
     Route: 065
  4. MOTRIN [Concomitant]
     Active Substance: IBUPROFEN
     Route: 065
  5. COPAXONE [Suspect]
     Active Substance: GLATIRAMER ACETATE
     Indication: MULTIPLE SCLEROSIS
     Dosage: PREFILLED SYRINGE
     Route: 058
     Dates: start: 20161010
  6. METFORMIN [Concomitant]
     Active Substance: METFORMIN HYDROCHLORIDE
     Route: 065
  7. NORVASC [Concomitant]
     Active Substance: AMLODIPINE BESYLATE
     Route: 065
  8. COPAXONE [Suspect]
     Active Substance: GLATIRAMER ACETATE
     Dosage: PREFILLED SYRINGE
     Route: 058
     Dates: start: 20171119
  9. TOPROL XL [Concomitant]
     Active Substance: METOPROLOL SUCCINATE
     Route: 065

REACTIONS (2)
  - Chills [Recovered/Resolved]
  - Feeling cold [Recovered/Resolved]

NARRATIVE: CASE EVENT DATE: 201711
